FAERS Safety Report 4527458-1 (Version None)
Quarter: 2004Q4

REPORT INFORMATION
  Report Type: 
  Country: None (occurrence: None)
  Receive Date: 20041130
  Receipt Date: 20040914
  Transmission Date: 20050328
  Serious: No
  Sender: FDA-Public Use
  Company Number: WAES 0409USA01238

PATIENT
  Age: 75 Year
  Sex: Female

DRUGS (3)
  1. ZETIA [Suspect]
     Indication: HYPERLIPIDAEMIA
     Dosage: 10 MG, DAILY, PO
     Route: 048
     Dates: start: 20040825
  2. SYNTHROID [Concomitant]
  3. ASPIRIN [Concomitant]

REACTIONS (6)
  - ABNORMAL FAECES [None]
  - FEELING ABNORMAL [None]
  - FREQUENT BOWEL MOVEMENTS [None]
  - HEADACHE [None]
  - PAIN IN EXTREMITY [None]
  - PALPITATIONS [None]
